FAERS Safety Report 4546764-8 (Version None)
Quarter: 2005Q1

REPORT INFORMATION
  Report Type: 
  Country: None (occurrence: None)
  Receive Date: 20050106
  Receipt Date: 20041216
  Transmission Date: 20050727
  Serious: Yes (Death, Life-Threatening)
  Sender: FDA-Public Use
  Company Number: DE-ABBOTT-04P-062-0284037-00

PATIENT
  Sex: Female

DRUGS (12)
  1. KLACID I.V. [Suspect]
     Indication: PNEUMONIA
     Route: 042
     Dates: start: 20030107, end: 20030107
  2. CEFUROXIME [Concomitant]
     Indication: PNEUMONIA
     Route: 042
     Dates: start: 20030107
  3. CEFUROXIME [Concomitant]
     Dates: start: 20030107, end: 20030107
  4. SODIUM CHLORIDE [Concomitant]
     Indication: DRUG USE FOR UNKNOWN INDICATION
     Dates: start: 20030107, end: 20030108
  5. PERIPLASMAL [Concomitant]
     Indication: DRUG USE FOR UNKNOWN INDICATION
     Dates: start: 20030108
  6. MIDAZOLAM HCL [Concomitant]
     Indication: DRUG USE FOR UNKNOWN INDICATION
     Dates: start: 20030107
  7. PHYTONADIONE [Concomitant]
     Indication: DRUG USE FOR UNKNOWN INDICATION
     Dates: start: 20030107
  8. DIGOXIN [Concomitant]
     Indication: DRUG USE FOR UNKNOWN INDICATION
     Route: 042
     Dates: start: 20030107
  9. HEPARIN [Concomitant]
     Indication: DRUG USE FOR UNKNOWN INDICATION
     Dosage: 1000 IE/H
     Dates: start: 20030107
  10. METOPROLOL TARTRATE [Concomitant]
     Indication: DRUG USE FOR UNKNOWN INDICATION
     Route: 042
     Dates: start: 20030107, end: 20030107
  11. METOPROLOL TARTRATE [Concomitant]
     Route: 042
     Dates: start: 20030108
  12. FUROSEMIDE [Concomitant]
     Indication: DRUG USE FOR UNKNOWN INDICATION
     Dates: start: 20030107, end: 20030108

REACTIONS (2)
  - DISEASE PROGRESSION [None]
  - SEPSIS [None]
